FAERS Safety Report 6421654-4 (Version None)
Quarter: 2009Q4

REPORT INFORMATION
  Report Type: 
  Country: None (occurrence: None)
  Receive Date: 20091029
  Receipt Date: 20091029
  Transmission Date: 20100525
  Serious: Yes (Life-Threatening, Hospitalization, Disabling, Other)
  Sender: FDA-Public Use
  Company Number: None

PATIENT
  Age: 3 Year
  Sex: Male
  Weight: 15.8759 kg

DRUGS (1)
  1. PRELONE [Suspect]
     Indication: ASTHMA
     Dosage: ONE TEASPOON BY MOUTH ONCE A DAY PO
     Route: 048
     Dates: start: 20091022, end: 20091025

REACTIONS (13)
  - ANGER [None]
  - BLOOD POTASSIUM DECREASED [None]
  - BRAIN HYPOXIA [None]
  - CONVULSION [None]
  - DEPRESSED MOOD [None]
  - EAR INFECTION [None]
  - FATIGUE [None]
  - HYPERHIDROSIS [None]
  - IRRITABILITY [None]
  - MOOD SWINGS [None]
  - PERSONALITY CHANGE [None]
  - THIRST [None]
  - TINNITUS [None]
